FAERS Safety Report 21741242 (Version 1)
Quarter: 2022Q4

REPORT INFORMATION
  Report Type: Spontaneous
  Country: CH (occurrence: CH)
  Receive Date: 20221216
  Receipt Date: 20221216
  Transmission Date: 20230112
  Serious: Yes (Other)
  Sender: FDA-Public Use
  Company Number: None

PATIENT
  Age: 78 Year
  Sex: Male

DRUGS (22)
  1. PAXLOVID [Suspect]
     Active Substance: NIRMATRELVIR\RITONAVIR
     Indication: COVID-19
     Dosage: 300 MG, 2X/DAY, EVERY 12 HOURS
     Dates: start: 20221118, end: 20221123
  2. LORAZEPAM [Suspect]
     Active Substance: LORAZEPAM
     Dosage: 1 MG, SINGLE
     Dates: start: 20221115, end: 20221115
  3. LORAZEPAM [Suspect]
     Active Substance: LORAZEPAM
     Dosage: 1 MG, SINGLE
     Dates: start: 20221116, end: 20221116
  4. LORAZEPAM [Suspect]
     Active Substance: LORAZEPAM
     Dosage: 1 MG, SINGLE
     Dates: start: 20221118, end: 20221118
  5. LORAZEPAM [Suspect]
     Active Substance: LORAZEPAM
     Dosage: 1 MG, SINGLE
     Dates: start: 20221120, end: 20221120
  6. LORAZEPAM [Suspect]
     Active Substance: LORAZEPAM
     Dosage: 1 MG, SINGLE
     Dates: start: 20221121, end: 20221121
  7. LANTUS [Suspect]
     Active Substance: INSULIN GLARGINE
     Dosage: 24 IU, 1X/DAY
     Dates: start: 20221113
  8. NOVORAPID [Suspect]
     Active Substance: INSULIN ASPART
     Dosage: UNK UNK, AS NEEDED
     Dates: start: 20221113
  9. QUETIAPINE [Suspect]
     Active Substance: QUETIAPINE
     Dosage: 12.5 MG, 1X/DAY
     Dates: start: 20221113
  10. QUETIAPINE [Suspect]
     Active Substance: QUETIAPINE
     Dosage: AS NEEDED, MAX 2X/DAY
     Dates: start: 20221113
  11. EXELON [Suspect]
     Active Substance: RIVASTIGMINE TARTRATE
     Dosage: 4.6 MG, DAILY
     Dates: start: 20221114
  12. SODIUM PICOSULFATE [Suspect]
     Active Substance: SODIUM PICOSULFATE
     Dosage: 10 MG, 2X/DAY
     Dates: start: 20221116
  13. SODIUM PICOSULFATE [Suspect]
     Active Substance: SODIUM PICOSULFATE
     Dosage: 5 MG, MAX 2X/DAY
     Dates: start: 20221116
  14. DAFALGAN [Suspect]
     Active Substance: ACETAMINOPHEN
     Dosage: 1000 MG, MAX 3X/DAY
     Dates: start: 20221113
  15. MORPHINE HYDROCHLORIDE [Suspect]
     Active Substance: MORPHINE HYDROCHLORIDE
     Dosage: 5 MG, MAX EVERY 4 HRS
     Dates: start: 20221113
  16. TENORMIN [Concomitant]
     Active Substance: ATENOLOL
     Dosage: UNK
  17. AMLODIPINE [Concomitant]
     Active Substance: AMLODIPINE BESYLATE
     Dosage: UNK
  18. PERINDOPRIL [Concomitant]
     Active Substance: PERINDOPRIL
     Dosage: UNK
  19. ELIQUIS [Concomitant]
     Active Substance: APIXABAN
     Dosage: UNK
     Dates: end: 20221118
  20. METFORMIN HYDROCHLORIDE\SITAGLIPTIN PHOSPHATE [Concomitant]
     Active Substance: METFORMIN HYDROCHLORIDE\SITAGLIPTIN PHOSPHATE
     Dosage: UNK
     Dates: end: 20221118
  21. SIMVASTATIN [Concomitant]
     Active Substance: SIMVASTATIN
     Dosage: UNK
     Dates: end: 20221117
  22. HALOPERIDOL [Concomitant]
     Active Substance: HALOPERIDOL
     Dosage: UNK UNK, SINGLE
     Dates: start: 20221114, end: 20221114

REACTIONS (1)
  - Cholestatic liver injury [Not Recovered/Not Resolved]

NARRATIVE: CASE EVENT DATE: 20221118
